FAERS Safety Report 8216091-6 (Version None)
Quarter: 2012Q1

REPORT INFORMATION
  Report Type: 
  Country: None (occurrence: None)
  Receive Date: 20120316
  Receipt Date: 20120308
  Transmission Date: 20120608
  Serious: Yes (Other)
  Sender: FDA-Public Use
  Company Number: US-BAYER-2012-025119

PATIENT
  Age: 86 Year
  Sex: Female

DRUGS (1)
  1. LEUKINE [Suspect]
     Indication: WHITE BLOOD CELL COUNT DECREASED
     Dosage: UNK
     Dates: start: 20120307

REACTIONS (1)
  - BLOOD PRESSURE DIASTOLIC INCREASED [None]
